FAERS Safety Report 25627995 (Version 4)
Quarter: 2025Q4

REPORT INFORMATION
  Report Type: Spontaneous
  Country: BR (occurrence: BR)
  Receive Date: 20250731
  Receipt Date: 20251008
  Transmission Date: 20260118
  Serious: Yes (Other)
  Sender: SANDOZ
  Company Number: BR-002147023-NVSC2025BR112843

PATIENT
  Age: 35 Year
  Sex: Female
  Weight: 55 kg

DRUGS (3)
  1. ANASTROZOLE [Suspect]
     Active Substance: ANASTROZOLE
     Indication: Breast cancer
     Dosage: UNK, QD DAILY, 30 TABLETS MONTH, TAKING  IT AT BEDTIME, COMPANY SUN
     Route: 065
  2. KISQALI [Suspect]
     Active Substance: RIBOCICLIB SUCCINATE
     Dosage: UNK (SECOND CYCLE) (MAY)
     Route: 048
  3. KISQALI [Suspect]
     Active Substance: RIBOCICLIB SUCCINATE
     Indication: Breast cancer metastatic
     Dosage: 3 DOSAGE FORM, QD
     Route: 048
     Dates: start: 20250428

REACTIONS (14)
  - Neutrophil count decreased [Not Recovered/Not Resolved]
  - White blood cell count decreased [Recovering/Resolving]
  - Platelet count decreased [Unknown]
  - Red blood cell count decreased [Unknown]
  - Haematocrit decreased [Unknown]
  - Platelet count decreased [Recovered/Resolved]
  - Red cell distribution width increased [Not Recovered/Not Resolved]
  - Memory impairment [Recovering/Resolving]
  - Basophil count decreased [Recovered/Resolved]
  - Lymphocyte count decreased [Unknown]
  - Basophil percentage decreased [Recovered/Resolved]
  - Lymphocyte percentage decreased [Unknown]
  - Insomnia [Not Recovered/Not Resolved]
  - Head discomfort [Recovering/Resolving]

NARRATIVE: CASE EVENT DATE: 20250501
